FAERS Safety Report 10966282 (Version 1)
Quarter: 2015Q1

REPORT INFORMATION
  Report Type: Spontaneous
  Country: US (occurrence: US)
  Receive Date: 20150330
  Receipt Date: 20150330
  Transmission Date: 20150721
  Serious: Yes (Death)
  Sender: FDA-Public Use
  Company Number: US-MYLANLABS-2014M1015069

PATIENT
  Sex: Female
  Weight: 37.19 kg

DRUGS (2)
  1. FENTANYL. [Suspect]
     Active Substance: FENTANYL
     Indication: BONE DISORDER
     Dosage: UNK
  2. FENTANYL. [Suspect]
     Active Substance: FENTANYL
     Dosage: UNK

REACTIONS (1)
  - Intentional overdose [Fatal]

NARRATIVE: CASE EVENT DATE: 2012
